FAERS Safety Report 11332883 (Version 2)
Quarter: 2015Q3

REPORT INFORMATION
  Report Type: Spontaneous
  Country: US (occurrence: US)
  Receive Date: 20150803
  Receipt Date: 20150804
  Transmission Date: 20151125
  Serious: Yes (Other)
  Sender: FDA-Public Use
  Company Number: US-BAXALTA-2015BLT000660

PATIENT
  Age: 29 Year
  Sex: Male
  Weight: 63 kg

DRUGS (2)
  1. GAMMAGARD LIQUID [Suspect]
     Active Substance: HUMAN IMMUNOGLOBULIN G
     Indication: OFF LABEL USE
  2. GAMMAGARD LIQUID [Suspect]
     Active Substance: HUMAN IMMUNOGLOBULIN G
     Indication: NEUROPATHY PERIPHERAL
     Dosage: 30 G, X 4 DAYS
     Route: 042
     Dates: start: 20150709, end: 20150715

REACTIONS (5)
  - Skin burning sensation [Recovering/Resolving]
  - Pain in extremity [Recovering/Resolving]
  - Nausea [Unknown]
  - Pruritus [Recovering/Resolving]
  - Headache [Unknown]

NARRATIVE: CASE EVENT DATE: 20150715
